FAERS Safety Report 13184548 (Version 2)
Quarter: 2017Q2

REPORT INFORMATION
  Report Type: Spontaneous
  Country: US (occurrence: US)
  Receive Date: 20170203
  Receipt Date: 20170622
  Transmission Date: 20170830
  Serious: Yes (Other)
  Sender: FDA-Public Use
  Company Number: US-TEVA-735833USA

PATIENT
  Sex: Female

DRUGS (4)
  1. HYDROCODONE [Concomitant]
     Active Substance: HYDROCODONE
  2. MORPHINE [Concomitant]
     Active Substance: MORPHINE
  3. CODEINE [Concomitant]
     Active Substance: CODEINE
  4. TRAZODONE [Suspect]
     Active Substance: TRAZODONE HYDROCHLORIDE
     Route: 065
     Dates: start: 20151026

REACTIONS (4)
  - Foreign body [Recovered/Resolved]
  - Choking [Recovered/Resolved]
  - Product shape issue [Unknown]
  - Product use complaint [Unknown]

NARRATIVE: CASE EVENT DATE: 201701
